FAERS Safety Report 4451999-9 (Version None)
Quarter: 2004Q3

REPORT INFORMATION
  Report Type: 
  Country: None (occurrence: None)
  Receive Date: 20040915
  Receipt Date: 20040915
  Transmission Date: 20050211
  Serious: Yes (Hospitalization)
  Sender: FDA-Public Use
  Company Number: None

PATIENT
  Sex: Female
  Weight: 72.5755 kg

DRUGS (6)
  1. AUGMENTIN [Suspect]
     Indication: DIVERTICULITIS
     Dosage: PO [PRIOR TO ADMISSION]
     Route: 048
  2. LEVAQUIN [Concomitant]
  3. CLONIDINE HCL [Concomitant]
  4. HYZAAR [Concomitant]
  5. ZIAC [Concomitant]
  6. ASPIRIN [Concomitant]

REACTIONS (3)
  - DYSPNOEA [None]
  - GASTRITIS [None]
  - HEART RATE INCREASED [None]
